FAERS Safety Report 8520200-9 (Version None)
Quarter: 2012Q3

REPORT INFORMATION
  Report Type: 
  Country: None (occurrence: None)
  Receive Date: 20120719
  Receipt Date: 20120711
  Transmission Date: 20120928
  Serious: Yes (Other)
  Sender: FDA-Public Use
  Company Number: US-JNJFOC-20120707417

PATIENT
  Age: 34 Year
  Sex: Male
  Weight: 77.11 kg

DRUGS (3)
  1. UNKNOWN MEDICATION [Concomitant]
     Indication: PRODUCT USED FOR UNKNOWN INDICATION
     Route: 065
  2. MINOXIDIL [Suspect]
     Indication: HAIR GROWTH ABNORMAL
     Dosage: HALF CAP
     Route: 061
     Dates: start: 20120101, end: 20120101
  3. MINOXIDIL [Suspect]
     Route: 061
     Dates: start: 20120101, end: 20120101

REACTIONS (2)
  - LOSS OF CONSCIOUSNESS [None]
  - HEART RATE DECREASED [None]
